FAERS Safety Report 5853553-0 (Version None)
Quarter: 2008Q3

REPORT INFORMATION
  Report Type: 
  Country: None (occurrence: None)
  Receive Date: 20080822
  Receipt Date: 20080813
  Transmission Date: 20090109
  Serious: Yes (Other)
  Sender: FDA-Public Use
  Company Number: IL-JNJFOC-20080801561

PATIENT
  Age: 59 Year
  Sex: Female

DRUGS (3)
  1. LYRINEL [Suspect]
     Indication: DRUG USE FOR UNKNOWN INDICATION
     Route: 065
  2. OVESTIN [Concomitant]
     Indication: VULVOVAGINAL DRYNESS
     Route: 065
  3. LIVIAL [Concomitant]
     Indication: DRUG USE FOR UNKNOWN INDICATION
     Route: 065

REACTIONS (1)
  - VAGINAL HAEMORRHAGE [None]
